FAERS Safety Report 10182748 (Version 1)
Quarter: 2014Q2

REPORT INFORMATION
  Report Type: Spontaneous
  Country: US (occurrence: None)
  Receive Date: 20140519
  Receipt Date: 20140519
  Transmission Date: 20141212
  Serious: No
  Sender: FDA-Public Use
  Company Number: None

PATIENT
  Age: 82 Year
  Sex: Male
  Weight: 125.5 kg

DRUGS (1)
  1. PROPARACAINE [Suspect]
     Indication: EYE DISORDER
     Dates: start: 20140507, end: 20140507

REACTIONS (3)
  - Eyelid oedema [None]
  - Erythema of eyelid [None]
  - Eyelids pruritus [None]
